FAERS Safety Report 9819905 (Version 1)
Quarter: 2014Q1

REPORT INFORMATION
  Report Type: Spontaneous
  Country: US (occurrence: None)
  Receive Date: 20140114
  Receipt Date: 20140114
  Transmission Date: 20141002
  Serious: Yes (Life-Threatening, Hospitalization)
  Sender: FDA-Public Use
  Company Number: None

PATIENT
  Sex: Female

DRUGS (1)
  1. IVIG [Suspect]
     Dates: start: 20140109, end: 20140109

REACTIONS (3)
  - Wrong drug administered [None]
  - Drug dispensing error [None]
  - Anaphylactic reaction [None]
